FAERS Safety Report 13133032 (Version 1)
Quarter: 2017Q1

REPORT INFORMATION
  Report Type: Spontaneous
  Country: US (occurrence: US)
  Receive Date: 20170118
  Receipt Date: 20170118
  Transmission Date: 20170428
  Serious: Yes (Death)
  Sender: FDA-Public Use
  Company Number: None

PATIENT
  Age: 79 Year
  Sex: Male

DRUGS (1)
  1. PROCRIT [Suspect]
     Active Substance: ERYTHROPOIETIN
     Indication: ANAEMIA
     Dosage: 10,000 UNITS EVERY OTHER WEEK SUBCUTANEOUSLY
     Route: 058
     Dates: start: 20161129, end: 20170114

REACTIONS (1)
  - Death [None]

NARRATIVE: CASE EVENT DATE: 20170114
